FAERS Safety Report 12843392 (Version 1)
Quarter: 2016Q4

REPORT INFORMATION
  Report Type: Spontaneous
  Country: US (occurrence: US)
  Receive Date: 20161013
  Receipt Date: 20161013
  Transmission Date: 20170207
  Serious: No
  Sender: FDA-Public Use
  Company Number: US-ACTAVIS-2016-10742

PATIENT
  Age: 75 Year
  Sex: Female
  Weight: 62 kg

DRUGS (2)
  1. GABAPENTIN (AELLC) [Suspect]
     Active Substance: GABAPENTIN
     Indication: NEURALGIA
     Dosage: 100 MG, TID
     Route: 065
     Dates: end: 20160512
  2. GABAPENTIN (AELLC) [Suspect]
     Active Substance: GABAPENTIN
     Dosage: UNK UNK, UNKNOWN
     Route: 065
     Dates: start: 2016

REACTIONS (5)
  - Somnolence [Unknown]
  - Impaired driving ability [Unknown]
  - Coordination abnormal [Unknown]
  - Feeling abnormal [Unknown]
  - Mental impairment [Unknown]

NARRATIVE: CASE EVENT DATE: 2016
